FAERS Safety Report 4820693-4 (Version None)
Quarter: 2005Q4

REPORT INFORMATION
  Report Type: 
  Country: None (occurrence: None)
  Receive Date: 20051103
  Receipt Date: 20051025
  Transmission Date: 20060501
  Serious: Yes (Hospitalization)
  Sender: FDA-Public Use
  Company Number: HQWYE237225OCT05

PATIENT
  Sex: Female

DRUGS (1)
  1. CORDARONE [Suspect]
     Dosage: PROBABLY 200 MG DAILY

REACTIONS (6)
  - BEDRIDDEN [None]
  - BRADYKINESIA [None]
  - EXTRAPYRAMIDAL DISORDER [None]
  - FACIAL PARESIS [None]
  - PARKINSONISM [None]
  - TONGUE DISORDER [None]
